FAERS Safety Report 10374845 (Version 1)
Quarter: 2014Q1

REPORT INFORMATION
  Report Type: Spontaneous
  Country: US (occurrence: None)
  Receive Date: 20140306
  Receipt Date: 20140306
  Transmission Date: 20141002
  Serious: Yes (Other)
  Sender: FDA-Public Use
  Company Number: 163-21880-13063365

PATIENT
  Age: 76 Year
  Sex: Female

DRUGS (9)
  1. REVLIMID (LENALIDOMIDE) (15 MILLIGRAM, CAPSULES) [Suspect]
     Indication: PLASMA CELL MYELOMA
     Route: 048
     Dates: start: 20110811
  2. ORPHENADRINE (ORPHENADRINE) (TABLETS) [Concomitant]
  3. TYLENOL (PARACETAMOL) (TABLETS) [Concomitant]
  4. IBUPROFEN (IBUPROFEN) (TABLETS) [Concomitant]
  5. ARANESP (DARBEPORTIN ALFA) (INJECTION) [Concomitant]
  6. SYNTHROID (LEVOTHYROXINE SODIUM) [Concomitant]
  7. DEXAMETHASONE INTENSOL (DEXAMETHASONE) [Concomitant]
  8. STOOL SOFTENER (DOCUSATE SODIUM) [Concomitant]
  9. PROZAC (FLUOXETINE HYDROCHLORIDE) [Concomitant]

REACTIONS (1)
  - Anaemia [None]
